FAERS Safety Report 18164380 (Version 3)
Quarter: 2023Q4

REPORT INFORMATION
  Report Type: Spontaneous
  Country: US (occurrence: None)
  Receive Date: 20200818
  Receipt Date: 20231110
  Transmission Date: 20240110
  Serious: Yes (Other)
  Sender: FDA-Public Use
  Company Number: 2020SF02241

PATIENT
  Age: 29253 Day
  Sex: Female
  Weight: 62.6 kg

DRUGS (114)
  1. NEXIUM [Suspect]
     Active Substance: ESOMEPRAZOLE MAGNESIUM
     Indication: Gastrooesophageal reflux disease
     Route: 048
     Dates: start: 200104, end: 201906
  2. NEXIUM [Suspect]
     Active Substance: ESOMEPRAZOLE MAGNESIUM
     Indication: Gastrooesophageal reflux disease
     Route: 048
     Dates: start: 2001, end: 2017
  3. NEXIUM [Suspect]
     Active Substance: ESOMEPRAZOLE MAGNESIUM
     Indication: Gastrooesophageal reflux disease
     Dosage: GENERIC
     Route: 065
     Dates: start: 2015
  4. PRILOSEC [Suspect]
     Active Substance: OMEPRAZOLE MAGNESIUM
     Indication: Gastrooesophageal reflux disease
     Route: 048
     Dates: start: 2001, end: 2019
  5. PROTONIX [Suspect]
     Active Substance: PANTOPRAZOLE SODIUM
     Indication: Gastrooesophageal reflux disease
     Route: 065
     Dates: start: 200104, end: 201906
  6. PROTONIX [Suspect]
     Active Substance: PANTOPRAZOLE SODIUM
     Indication: Gastrooesophageal reflux disease
     Route: 065
     Dates: start: 2001, end: 2019
  7. PROTONIX [Suspect]
     Active Substance: PANTOPRAZOLE SODIUM
     Indication: Gastrooesophageal reflux disease
     Dosage: GENERIC
     Route: 065
  8. VITAMIN B COMPLEX [Concomitant]
     Active Substance: CYANOCOBALAMIN\DEXPANTHENOL\NIACINAMIDE\PYRIDOXINE HYDROCHLORIDE\RIBOFLAVIN 5^-PHOSPHATE SODIUM\THIA
     Indication: Dialysis
  9. VITAMIN D3 [Concomitant]
     Active Substance: CHOLECALCIFEROL
     Indication: Dialysis
  10. PENICILLIN G [Concomitant]
     Active Substance: PENICILLIN G
  11. HYDROCODONE/PARACETAMOL/ETHANOL [Concomitant]
  12. TIZANIDINE [Concomitant]
     Active Substance: TIZANIDINE
  13. POTASSIUM [Concomitant]
     Active Substance: POTASSIUM
  14. PREDNISONE [Concomitant]
     Active Substance: PREDNISONE
     Dates: start: 20161103
  15. COENZYME Q10 [Concomitant]
     Active Substance: DIETARY SUPPLEMENT\UBIDECARENONE
  16. MAGNESIUM OXIDE [Concomitant]
     Active Substance: MAGNESIUM OXIDE
  17. NITROSTAT [Concomitant]
     Active Substance: NITROGLYCERIN
  18. SENNA [Concomitant]
     Active Substance: SENNA LEAF\SENNOSIDES\SENNOSIDES A AND B
  19. ZYRTEC [Concomitant]
     Active Substance: CETIRIZINE HYDROCHLORIDE
     Dates: start: 20150321
  20. FLUTICASONE [Concomitant]
     Active Substance: FLUTICASONE
  21. HYDRALAZINE [Concomitant]
     Active Substance: HYDRALAZINE HYDROCHLORIDE
  22. PRAVASTATIN [Concomitant]
     Active Substance: PRAVASTATIN
  23. WARFARIN [Concomitant]
     Active Substance: WARFARIN
  24. ADVAIR HFA [Concomitant]
     Active Substance: FLUTICASONE PROPIONATE\SALMETEROL XINAFOATE
  25. BYSTOLIC [Concomitant]
     Active Substance: NEBIVOLOL HYDROCHLORIDE
  26. MULTAQ [Concomitant]
     Active Substance: DRONEDARONE
  27. ASPIRIN [Concomitant]
     Active Substance: ASPIRIN
  28. FUROSEMIDE [Concomitant]
     Active Substance: FUROSEMIDE
  29. ISOSORBIDE MONONITRATE [Concomitant]
     Active Substance: ISOSORBIDE MONONITRATE
     Dates: start: 20160907
  30. LEVOTHYROXINE [Concomitant]
     Active Substance: LEVOTHYROXINE
     Dates: start: 20160612
  31. MONTELUKAST [Concomitant]
     Active Substance: MONTELUKAST SODIUM
  32. FERRITIN [Concomitant]
     Active Substance: FERRITIN
  33. AMPICILLIN [Concomitant]
     Active Substance: AMPICILLIN
  34. GENTAMICIN [Concomitant]
     Active Substance: GENTAMICIN
  35. NITROFURANTOIN [Concomitant]
     Active Substance: NITROFURANTOIN
  36. TOBRAMYCIN [Concomitant]
     Active Substance: TOBRAMYCIN
  37. SULFAMETHOXAZOLE\TRIMETHOPRIM [Concomitant]
     Active Substance: SULFAMETHOXAZOLE\TRIMETHOPRIM
  38. IMIPENEM [Concomitant]
     Active Substance: IMIPENEM
  39. CEFEPIME [Concomitant]
     Active Substance: CEFEPIME HYDROCHLORIDE
  40. COUMADIN [Concomitant]
     Active Substance: WARFARIN SODIUM
  41. TUMS [Concomitant]
     Active Substance: CALCIUM CARBONATE
  42. ZANTAC [Concomitant]
     Active Substance: RANITIDINE HYDROCHLORIDE
  43. METOPROLOL [Concomitant]
     Active Substance: METOPROLOL
  44. DILAUDID [Concomitant]
     Active Substance: HYDROMORPHONE HYDROCHLORIDE
  45. VITAMIN K [Concomitant]
     Active Substance: PHYTONADIONE
  46. PHYTONADIONE [Concomitant]
     Active Substance: PHYTONADIONE
  47. ALBUTEROL [Concomitant]
     Active Substance: ALBUTEROL
  48. ALBUTEROL\IPRATROPIUM BROMIDE [Concomitant]
     Active Substance: ALBUTEROL\IPRATROPIUM BROMIDE
  49. AMBIEN [Concomitant]
     Active Substance: ZOLPIDEM TARTRATE
  50. FENTANYL [Concomitant]
     Active Substance: FENTANYL\FENTANYL CITRATE
  51. PROPOFOL [Concomitant]
     Active Substance: PROPOFOL
  52. PHENYLEPHRINE [Concomitant]
     Active Substance: PHENYLEPHRINE HYDROCHLORIDE
  53. ROCURONIUM [Concomitant]
     Active Substance: ROCURONIUM BROMIDE
  54. LIDOCAINE [Concomitant]
     Active Substance: LIDOCAINE
  55. DEXAMETHASONE [Concomitant]
     Active Substance: DEXAMETHASONE
  56. CLINDAMYCIN [Concomitant]
     Active Substance: CLINDAMYCIN
  57. SODIUM CHLORIDE [Concomitant]
     Active Substance: SODIUM CHLORIDE
  58. TRANEXAMIC ACID [Concomitant]
     Active Substance: TRANEXAMIC ACID
  59. BACITRACIN [Concomitant]
     Active Substance: BACITRACIN
  60. POLYMYXIN B SULFATE [Concomitant]
     Active Substance: POLYMYXIN B SULFATE
  61. SUGAMMADEX [Concomitant]
     Active Substance: SUGAMMADEX
  62. BUPIVACAINE [Concomitant]
     Active Substance: BUPIVACAINE
  63. EPINEPHRINE [Concomitant]
     Active Substance: EPINEPHRINE
  64. FERROUS SULFATE [Concomitant]
     Active Substance: FERROUS SULFATE
  65. DIAZEPAM [Concomitant]
     Active Substance: DIAZEPAM
  66. OXYCODONE [Concomitant]
     Active Substance: OXYCODONE
     Dates: start: 20190115
  67. DOCUSATE-SENNA [Concomitant]
  68. POLYETHYLENE GLYCOL [Concomitant]
     Active Substance: POLYETHYLENE GLYCOL
  69. LOVENOX [Concomitant]
     Active Substance: ENOXAPARIN SODIUM
  70. HEPARIN [Concomitant]
     Active Substance: HEPARIN SODIUM
  71. MORPHINE [Concomitant]
     Active Substance: MORPHINE
  72. LACTATED RINGERS SOLUTION [Concomitant]
     Active Substance: CALCIUM CHLORIDE\POTASSIUM CHLORIDE\SODIUM CHLORIDE\SODIUM LACTATE
  73. ROCEPHIN [Concomitant]
     Active Substance: CEFTRIAXONE SODIUM
  74. PERI-COLACE [Concomitant]
     Active Substance: CASANTHRANOL\DOCUSATE SODIUM
  75. VENOFER [Concomitant]
     Active Substance: IRON SUCROSE
  76. IRON [Concomitant]
     Active Substance: IRON
  77. MIDODRINE [Concomitant]
     Active Substance: MIDODRINE
  78. XARELTO [Concomitant]
     Active Substance: RIVAROXABAN
  79. BREO ELLIPTA [Concomitant]
     Active Substance: FLUTICASONE FUROATE\VILANTEROL TRIFENATATE
  80. TRELEGY ELLIPTA [Concomitant]
     Active Substance: FLUTICASONE FUROATE\UMECLIDINIUM BROMIDE\VILANTEROL TRIFENATATE
  81. SPIRIVA [Concomitant]
     Active Substance: TIOTROPIUM BROMIDE MONOHYDRATE
  82. EPOGEN [Concomitant]
     Active Substance: ERYTHROPOIETIN
  83. LIPASE/FACTOR VII (PROCONVERTIN)/FACTOR IX/FACTOR X (STUART PROWER FAC [Concomitant]
  84. MARCAINE [Concomitant]
     Active Substance: BUPIVACAINE HYDROCHLORIDE
  85. ONDANSETRON [Concomitant]
     Active Substance: ONDANSETRON
     Dates: start: 20190115
  86. SOLU-MEDROL [Concomitant]
     Active Substance: METHYLPREDNISOLONE SODIUM SUCCINATE
  87. MEDROL [Concomitant]
     Active Substance: METHYLPREDNISOLONE
  88. SODIUM BICARBONATE [Concomitant]
     Active Substance: SODIUM BICARBONATE
  89. HYDROCORTISONE [Concomitant]
     Active Substance: HYDROCORTISONE
  90. BUDESONIDE\FORMOTEROL [Concomitant]
     Active Substance: BUDESONIDE\FORMOTEROL
  91. ROSUVASTATIN [Concomitant]
     Active Substance: ROSUVASTATIN
     Dates: start: 20191115
  92. TYLENOL [Concomitant]
     Active Substance: ACETAMINOPHEN
  93. ZOSYN [Concomitant]
     Active Substance: PIPERACILLIN SODIUM\TAZOBACTAM SODIUM
  94. UNASYN [Concomitant]
     Active Substance: AMPICILLIN SODIUM\SULBACTAM SODIUM
  95. VASOPRESSIN [Concomitant]
     Active Substance: VASOPRESSIN
  96. GABAPENTIN [Concomitant]
     Active Substance: GABAPENTIN
     Dates: start: 20181212
  97. BENZOCAINE [Concomitant]
     Active Substance: BENZOCAINE
  98. KETAMINE [Concomitant]
     Active Substance: KETAMINE
  99. ETOMIDATE [Concomitant]
     Active Substance: ETOMIDATE
  100. OXYGEN [Concomitant]
     Active Substance: OXYGEN
  101. SYNTHROID [Concomitant]
     Active Substance: LEVOTHYROXINE SODIUM
  102. PHENERGAN [Concomitant]
     Active Substance: PROMETHAZINE HYDROCHLORIDE
  103. CLONIDINE [Concomitant]
     Active Substance: CLONIDINE
  104. XALATAN [Concomitant]
     Active Substance: LATANOPROST
  105. FLUTICASONE PROPIONATE [Concomitant]
     Active Substance: FLUTICASONE PROPIONATE
  106. RESTASIS [Concomitant]
     Active Substance: CYCLOSPORINE
  107. VERAMYST [Concomitant]
     Active Substance: FLUTICASONE FUROATE
  108. BEPREVE [Concomitant]
     Active Substance: BEPOTASTINE BESILATE
  109. CODEINE SULFATE [Concomitant]
     Active Substance: CODEINE SULFATE
  110. TRIAMCINOLONE ACETONIDE [Concomitant]
     Active Substance: TRIAMCINOLONE ACETONIDE
  111. ATORVASTATIN CALCIUM [Concomitant]
     Active Substance: ATORVASTATIN CALCIUM
  112. DULERA [Concomitant]
     Active Substance: FORMOTEROL FUMARATE DIHYDRATE\MOMETASONE FUROATE
  113. DOXYCYCLINE [Concomitant]
     Active Substance: DOXYCYCLINE
  114. CIPROFLOXACIN [Concomitant]
     Active Substance: CIPROFLOXACIN
     Dates: start: 20150414

REACTIONS (7)
  - Chronic kidney disease [Not Recovered/Not Resolved]
  - End stage renal disease [Not Recovered/Not Resolved]
  - Renal failure [Unknown]
  - Acute kidney injury [Unknown]
  - Nephrogenic anaemia [Unknown]
  - Hyperparathyroidism secondary [Unknown]
  - Gastrooesophageal reflux disease [Not Recovered/Not Resolved]

NARRATIVE: CASE EVENT DATE: 20160328
